FAERS Safety Report 4716633-9 (Version None)
Quarter: 2005Q3

REPORT INFORMATION
  Report Type: 
  Country: None (occurrence: None)
  Receive Date: 20050714
  Receipt Date: 20050629
  Transmission Date: 20060218
  Serious: Yes (Other)
  Sender: FDA-Public Use
  Company Number: 2005BI012459

PATIENT
  Age: 53 Year
  Sex: Female

DRUGS (2)
  1. AVONEX [Suspect]
     Indication: MULTIPLE SCLEROSIS
     Dosage: Q4D; IM
     Route: 030
  2. NOVANTRONE [Concomitant]

REACTIONS (7)
  - DIFFICULTY IN WALKING [None]
  - DISEASE PROGRESSION [None]
  - LOSS OF CONTROL OF LEGS [None]
  - MULTIPLE SCLEROSIS [None]
  - OVARIAN CYST [None]
  - PARAESTHESIA [None]
  - UTERINE POLYP [None]
